FAERS Safety Report 7545203-2 (Version None)
Quarter: 2011Q2

REPORT INFORMATION
  Report Type: 
  Country: None (occurrence: None)
  Receive Date: 20110525
  Receipt Date: 20110428
  Transmission Date: 20111010
  Serious: Yes (Other)
  Sender: FDA-Public Use
  Company Number: 2011028504

PATIENT
  Age: 16 Year
  Sex: Female
  Weight: 110 kg

DRUGS (10)
  1. HIZENTRA [Suspect]
  2. ALBUTEROL [Concomitant]
  3. SYMBICORT [Concomitant]
  4. HIZENTRA [Suspect]
     Indication: IMMUNODEFICIENCY COMMON VARIABLE
     Dosage: 7 G 1X/WEEK, 7 G (35 ML) WEEKLY VIA 3 SITES OVER 1 HOR/14 MINUTES 20% CONCENTRATION, SUBCUTANEOUS
     Route: 058
     Dates: start: 20110410
  5. EXCEDRIN MIGRAINE (THOMAPYRIN N) [Concomitant]
  6. PREVACID [Concomitant]
  7. ZOFRAN [Concomitant]
  8. ZOVIRAX [Concomitant]
  9. EXTRA STRENGTH TYLENOL [Concomitant]
  10. HIZENTRA [Suspect]

REACTIONS (1)
  - RESPIRATORY TRACT INFECTION [None]
